FAERS Safety Report 8404676-3 (Version None)
Quarter: 2012Q2

REPORT INFORMATION
  Report Type: 
  Country: None (occurrence: None)
  Receive Date: 20120601
  Receipt Date: 20120523
  Transmission Date: 20120825
  Serious: Yes (Other)
  Sender: FDA-Public Use
  Company Number: US-ASTRAZENECA-2011SE33068

PATIENT
  Age: 54 Year
  Sex: Male

DRUGS (4)
  1. LEXAPRO [Concomitant]
     Route: 048
  2. SEROQUEL [Suspect]
     Indication: BIPOLAR DISORDER
     Route: 048
  3. CONSERTA [Concomitant]
     Indication: ATTENTION DEFICIT/HYPERACTIVITY DISORDER
     Route: 048
  4. LEMICTAL [Concomitant]
     Route: 048

REACTIONS (9)
  - NECK PAIN [None]
  - SYNCOPE [None]
  - NECK INJURY [None]
  - PSYCHOTIC DISORDER [None]
  - INTERVERTEBRAL DISC DEGENERATION [None]
  - INTENTIONAL DRUG MISUSE [None]
  - CONVULSION [None]
  - HYPOAESTHESIA [None]
  - LYMPHADENOPATHY [None]
